FAERS Safety Report 7102487-2 (Version None)
Quarter: 2010Q4

REPORT INFORMATION
  Report Type: 
  Country: None (occurrence: None)
  Receive Date: 20101115
  Receipt Date: 20101104
  Transmission Date: 20110411
  Serious: Yes (Other)
  Sender: FDA-Public Use
  Company Number: US-ROCHE-739432

PATIENT

DRUGS (3)
  1. AVASTIN [Suspect]
     Dosage: START DATE: ABOUT ONE AND A HALF YEAR AGO
     Route: 065
     Dates: start: 20090101
  2. XELODA [Suspect]
     Dosage: START DATE: ABOUT ONE AND A HALF YEAR AGO
     Route: 065
     Dates: start: 20090101
  3. OXALIPLATIN [Suspect]
     Dosage: START DATE: ABOUT ONE AND A HALF YEAR AGO
     Route: 065
     Dates: start: 20090101

REACTIONS (1)
  - RECURRENT CANCER [None]
